FAERS Safety Report 17589408 (Version 2)
Quarter: 2021Q2

REPORT INFORMATION
  Report Type: Spontaneous
  Country: US (occurrence: US)
  Receive Date: 20200327
  Receipt Date: 20210413
  Transmission Date: 20210716
  Serious: No
  Sender: FDA-Public Use
  Company Number: US-ALLERGAN-1938148US

PATIENT
  Sex: Female

DRUGS (1)
  1. LATISSE [Suspect]
     Active Substance: BIMATOPROST
     Indication: GROWTH OF EYELASHES
     Dosage: UNK
     Route: 061
     Dates: start: 2019, end: 2019

REACTIONS (5)
  - Wrong technique in product usage process [Unknown]
  - Hypersensitivity [Unknown]
  - Thermal burns of eye [Recovered/Resolved]
  - Eye pruritus [Recovered/Resolved]
  - Blepharal pigmentation [Recovered/Resolved]
